FAERS Safety Report 24779512 (Version 1)
Quarter: 2024Q4

REPORT INFORMATION
  Report Type: Spontaneous
  Country: SE (occurrence: SE)
  Receive Date: 20241226
  Receipt Date: 20241226
  Transmission Date: 20250115
  Serious: Yes (Other)
  Sender: MYLAN
  Company Number: SE-PFIZER INC-202400316647

PATIENT

DRUGS (3)
  1. FUROSEMIDE [Interacting]
     Active Substance: FUROSEMIDE
     Indication: Product used for unknown indication
     Dosage: UNK
     Route: 065
  2. BENDROFLUMETHIAZIDE [Interacting]
     Active Substance: BENDROFLUMETHIAZIDE
     Indication: Product used for unknown indication
     Dosage: UNK
     Route: 065
  3. LITHIUM [Interacting]
     Active Substance: LITHIUM
     Indication: Product used for unknown indication
     Dosage: UNK
     Route: 065

REACTIONS (6)
  - Gait disturbance [Unknown]
  - Asthenia [Unknown]
  - Dysarthria [Unknown]
  - Toxicity to various agents [Unknown]
  - Somnolence [Unknown]
  - Drug interaction [Unknown]
